FAERS Safety Report 6353331-2 (Version None)
Quarter: 2009Q3

REPORT INFORMATION
  Report Type: 
  Country: None (occurrence: None)
  Receive Date: 20090912
  Receipt Date: 20090605
  Transmission Date: 20100115
  Serious: No
  Sender: FDA-Public Use
  Company Number: US-BAUSCH-2009BL002822

PATIENT

DRUGS (1)
  1. TROPICAMIDE [Suspect]
     Indication: OPHTHALMOLOGICAL EXAMINATION
     Route: 047

REACTIONS (1)
  - BLEPHAROSPASM [None]
